FAERS Safety Report 5492467-5 (Version None)
Quarter: 2007Q4

REPORT INFORMATION
  Report Type: 
  Country: None (occurrence: None)
  Receive Date: 20071015
  Receipt Date: 20070727
  Transmission Date: 20080405
  Serious: No
  Sender: FDA-Public Use
  Company Number: 2007SP002668

PATIENT
  Age: 64 Year
  Sex: Male

DRUGS (7)
  1. LUNESTA [Suspect]
     Dosage: 3 MG;HS;ORAL, 5 MG;HS;ORAL
     Route: 048
     Dates: start: 20051101, end: 20070501
  2. LUNESTA [Suspect]
     Dosage: 3 MG;HS;ORAL, 5 MG;HS;ORAL
     Route: 048
     Dates: start: 20070501
  3. AVALIDE [Concomitant]
  4. ATORVASTATIN CALCIUM [Concomitant]
  5. ALPRAZOLAM [Concomitant]
  6. VIAGRA [Concomitant]
  7. LAMOTRIGINE [Concomitant]

REACTIONS (1)
  - INSOMNIA [None]
